FAERS Safety Report 8377769-7 (Version None)
Quarter: 2012Q2

REPORT INFORMATION
  Report Type: 
  Country: None (occurrence: None)
  Receive Date: 20120522
  Receipt Date: 20120518
  Transmission Date: 20120825
  Serious: Yes (Other)
  Sender: FDA-Public Use
  Company Number: CA-BAYER-2012-050043

PATIENT
  Age: 90 Year
  Sex: Male

DRUGS (4)
  1. AVELOX [Suspect]
     Indication: LOCALISED INFECTION
     Dosage: 400 MG, QD
     Route: 048
     Dates: start: 20120320, end: 20120503
  2. AVELOX [Suspect]
     Indication: OSTEOMYELITIS
  3. ANTIBIOTICS [Concomitant]
     Indication: OSTEOMYELITIS
  4. ANTIBIOTICS [Concomitant]
     Indication: LOCALISED INFECTION
     Dosage: INFUSION
     Route: 042

REACTIONS (2)
  - CONFUSIONAL STATE [None]
  - COGNITIVE DISORDER [None]
